FAERS Safety Report 13196593 (Version 2)
Quarter: 2017Q1

REPORT INFORMATION
  Report Type: Spontaneous
  Country: JP (occurrence: JP)
  Receive Date: 20170208
  Receipt Date: 20170302
  Transmission Date: 20170428
  Serious: Yes (Hospitalization)
  Sender: FDA-Public Use
  Company Number: JP-ELI_LILLY_AND_COMPANY-JP201611007738

PATIENT
  Age: 67 Year
  Sex: Male

DRUGS (4)
  1. CYRAMZA [Suspect]
     Active Substance: RAMUCIRUMAB
     Indication: GASTRIC CANCER STAGE IV
     Dosage: 450 MG, OTHER
     Route: 042
     Dates: start: 20160812, end: 20160903
  2. LOXOPROFEN [Concomitant]
     Active Substance: LOXOPROFEN
     Indication: GASTRIC CANCER STAGE IV
     Dosage: 1 DF, QD
     Route: 048
     Dates: start: 20160810, end: 20160914
  3. RABEPRAZOLE SODIUM. [Concomitant]
     Active Substance: RABEPRAZOLE SODIUM
     Indication: GASTRIC CANCER STAGE IV
     Dosage: 10 MG, QD
     Route: 048
     Dates: start: 20160818, end: 20160908
  4. PACLITAXEL. [Concomitant]
     Active Substance: PACLITAXEL
     Indication: GASTRIC CANCER STAGE IV
     Dosage: 130 MG, OTHER
     Route: 042
     Dates: start: 20160812, end: 20160903

REACTIONS (2)
  - Gastric perforation [Recovered/Resolved]
  - Abdominal abscess [Recovered/Resolved]

NARRATIVE: CASE EVENT DATE: 20160909
